FAERS Safety Report 23676799 (Version 1)
Quarter: 2024Q1

REPORT INFORMATION
  Report Type: Spontaneous
  Country: US (occurrence: US)
  Receive Date: 20240327
  Receipt Date: 20240327
  Transmission Date: 20240409
  Serious: No
  Sender: FDA-Public Use
  Company Number: US-BRISTOL-MYERS SQUIBB COMPANY-2024-048545

PATIENT
  Age: 82 Year
  Sex: Female
  Weight: 55.79 kg

DRUGS (1)
  1. ONUREG [Suspect]
     Active Substance: AZACITIDINE
     Indication: Acute myeloid leukaemia (in remission)
     Route: 048
     Dates: start: 20220421

REACTIONS (1)
  - Vomiting [Recovered/Resolved]
